FAERS Safety Report 12772181 (Version 1)
Quarter: 2016Q3

REPORT INFORMATION
  Report Type: Report from Study
  Country: TW (occurrence: TW)
  Receive Date: 20160922
  Receipt Date: 20160922
  Transmission Date: 20161109
  Serious: Yes (Hospitalization)
  Sender: FDA-Public Use
  Company Number: TW-JNJFOC-20160911471

PATIENT
  Age: 55 Year
  Sex: Female
  Weight: 43 kg

DRUGS (7)
  1. XANTHIUM [Concomitant]
     Route: 048
  2. CELECOXIB. [Concomitant]
     Active Substance: CELECOXIB
     Route: 048
  3. IMURAN [Concomitant]
     Active Substance: AZATHIOPRINE
     Route: 065
  4. PLAQUENIL [Concomitant]
     Active Substance: HYDROXYCHLOROQUINE SULFATE
     Route: 065
  5. FLUNARIZINE [Concomitant]
     Active Substance: FLUNARIZINE
     Route: 048
  6. PREDNISOLONE. [Concomitant]
     Active Substance: PREDNISOLONE
     Route: 048
  7. SIMPONI [Suspect]
     Active Substance: GOLIMUMAB
     Indication: RHEUMATOID ARTHRITIS
     Route: 058
     Dates: start: 20120516

REACTIONS (9)
  - Urinary tract infection [Recovered/Resolved]
  - Joint swelling [Unknown]
  - Renal cyst [Unknown]
  - Arthralgia [Unknown]
  - Spinal pain [Unknown]
  - Nephrolithiasis [Unknown]
  - Pharyngitis [Unknown]
  - Diarrhoea [Unknown]
  - Vomiting [Unknown]

NARRATIVE: CASE EVENT DATE: 20160813
